FAERS Safety Report 24706429 (Version 1)
Quarter: 2024Q4

REPORT INFORMATION
  Report Type: Spontaneous
  Country: JP (occurrence: JP)
  Receive Date: 20241206
  Receipt Date: 20241206
  Transmission Date: 20250115
  Serious: Yes (Other)
  Sender: MERCK
  Company Number: JP-ONO-2024JP023113

PATIENT
  Age: 7 Decade
  Sex: Female

DRUGS (1)
  1. SITAGLIPTIN [Suspect]
     Active Substance: SITAGLIPTIN
     Indication: Type 2 diabetes mellitus
     Dosage: 100 MILLIGRAM
     Route: 048
     Dates: start: 20240910

REACTIONS (1)
  - Diabetes mellitus inadequate control [Unknown]
